FAERS Safety Report 9053607 (Version 1)
Quarter: 2013Q1

REPORT INFORMATION
  Report Type: Spontaneous
  Country: US (occurrence: None)
  Receive Date: 20130117
  Receipt Date: 20130117
  Transmission Date: 20140127
  Serious: Yes (Hospitalization, Other)
  Sender: FDA-Public Use
  Company Number: ACO_33691_2013

PATIENT
  Age: 40 Year
  Sex: Female
  Weight: 105.5 kg

DRUGS (21)
  1. ZANAFLEX [Suspect]
     Indication: BACK PAIN
     Route: 048
     Dates: start: 20120418, end: 20120712
  2. NEURONTIN [Suspect]
     Indication: DIABETIC NEUROPATHY
     Route: 048
     Dates: start: 20110704
  3. TOPROL [Suspect]
     Indication: HYPERTENSION
     Route: 048
     Dates: start: 20120418, end: 20120712
  4. NEXIUM (ESOMEPRAZOLE MAGNESIUM) [Concomitant]
  5. CELEXA (CITALOPRAM HYDROBROMIDE) [Concomitant]
  6. SINGULAIR [Concomitant]
  7. VENTOLIN HFA (SALBUTAMOL) [Concomitant]
  8. ALBUTEROL (SALBUTAMOL) [Concomitant]
  9. CREON (PANCREATIN) [Concomitant]
  10. ADAVIR (FLUTICASONE ROPIONATE, SALMETEROL XINAFOATE) [Concomitant]
  11. GLIPIZIDE XL (GLIPIZIDE) [Concomitant]
  12. TRICOR (FENOFIBRATE) [Concomitant]
  13. CLARITIN (LORATADINE) [Concomitant]
  14. VESICARE [Concomitant]
  15. LIDODERM (LIDOCAINE) [Concomitant]
  16. PRILOSEC [Concomitant]
  17. HUMALOG (INSULIN LISPRO) [Concomitant]
  18. VALIUM (DIAZEPAM) [Concomitant]
  19. LEVEMIR (INSULIN DETEMIR) [Concomitant]
  20. PRAVACHOL (PRAVASTATIN SODIUM) [Concomitant]
  21. LOPID (GEMFIBROZIL) [Concomitant]

REACTIONS (17)
  - Syncope [None]
  - Drug interaction [None]
  - Blood triglycerides abnormal [None]
  - Foaming at mouth [None]
  - Blood cholesterol abnormal [None]
  - Blood glucose abnormal [None]
  - Bite [None]
  - Fall [None]
  - Contusion [None]
  - Hypertension [None]
  - Heat illness [None]
  - Dyskinesia [None]
  - Face injury [None]
  - Excoriation [None]
  - Tricuspid valve incompetence [None]
  - Mitral valve incompetence [None]
  - Carotid artery stenosis [None]
